FAERS Safety Report 4786437-X (Version None)
Quarter: 2005Q4

REPORT INFORMATION
  Report Type: 
  Country: None (occurrence: None)
  Receive Date: 20051003
  Receipt Date: 20050927
  Transmission Date: 20060501
  Serious: Yes (Hospitalization)
  Sender: FDA-Public Use
  Company Number: US-MERCK-0509USA04415

PATIENT
  Age: 51 Year
  Sex: Male
  Weight: 164 kg

DRUGS (7)
  1. VIOXX [Suspect]
     Indication: ARTHRITIS
     Route: 048
     Dates: start: 20010101, end: 20030101
  2. VIOXX [Suspect]
     Route: 048
     Dates: start: 20010101, end: 20030101
  3. VITAMINS (UNSPECIFIED) [Concomitant]
     Route: 065
  4. LASIX [Concomitant]
     Route: 065
  5. ASPIRIN [Concomitant]
     Route: 065
  6. [THERAPY UNSPECIFIED] [Concomitant]
     Route: 065
  7. ALLERGENIC EXTRACT [Concomitant]
     Route: 065

REACTIONS (7)
  - ADVERSE EVENT [None]
  - CHEST PAIN [None]
  - DEPRESSION [None]
  - FACIAL PALSY [None]
  - MYOCARDIAL INFARCTION [None]
  - PNEUMONIA [None]
  - PRESCRIBED OVERDOSE [None]
